FAERS Safety Report 17501976 (Version 1)
Quarter: 2020Q1

REPORT INFORMATION
  Report Type: Spontaneous
  Country: US (occurrence: US)
  Receive Date: 20200305
  Receipt Date: 20200305
  Transmission Date: 20200409
  Serious: Yes (Hospitalization)
  Sender: FDA-Public Use
  Company Number: None

PATIENT
  Age: 86 Year
  Sex: Female

DRUGS (2)
  1. FUROSEMIDE. [Suspect]
     Active Substance: FUROSEMIDE
     Route: 048
     Dates: start: 20161202, end: 20200212
  2. LOSARTAN. [Suspect]
     Active Substance: LOSARTAN
     Route: 048
     Dates: start: 20180927, end: 20200212

REACTIONS (7)
  - Therapy cessation [None]
  - Acute kidney injury [None]
  - Diplopia [None]
  - Dizziness [None]
  - Hyperkalaemia [None]
  - Blood creatinine increased [None]
  - Balance disorder [None]

NARRATIVE: CASE EVENT DATE: 20200212
